FAERS Safety Report 8563840-3 (Version None)
Quarter: 2012Q3

REPORT INFORMATION
  Report Type: 
  Country: None (occurrence: None)
  Receive Date: 20120727
  Receipt Date: 20120727
  Transmission Date: 20120928
  Serious: No
  Sender: FDA-Public Use
  Company Number: None

PATIENT
  Sex: Female
  Weight: 77.5651 kg

DRUGS (1)
  1. LEVOTHYROXINE SODIUM [Suspect]
     Indication: HYPOTHYROIDISM
     Dosage: 50 MCG DAILY ORAL
     Route: 048
     Dates: start: 20061019

REACTIONS (5)
  - WEIGHT INCREASED [None]
  - FATIGUE [None]
  - BLOOD THYROID STIMULATING HORMONE INCREASED [None]
  - PRODUCT SUBSTITUTION ISSUE [None]
  - DEPRESSION [None]
